FAERS Safety Report 4623649-X (Version None)
Quarter: 2005Q1

REPORT INFORMATION
  Report Type: 
  Country: None (occurrence: None)
  Receive Date: 20050330
  Receipt Date: 20050314
  Transmission Date: 20050727
  Serious: Yes (Hospitalization)
  Sender: FDA-Public Use
  Company Number: TRP_0084_2005

PATIENT
  Age: 52 Year
  Sex: Male

DRUGS (7)
  1. RIBASPHERE [Suspect]
     Indication: HEPATITIS C
     Dosage: 1200 MG QDAY; PO
     Route: 048
     Dates: start: 20040908, end: 20050207
  2. INFERGEN [Suspect]
     Indication: HEPATITIS C
     Dosage: 9 MCG QDAY; SC
     Route: 058
     Dates: start: 20040908, end: 20050207
  3. INTERFERON GAMMA 1B/IFN GAMMA 1B [Suspect]
     Indication: HEPATITIS C
     Dosage: 100 MCG 3XWK; SC
     Route: 058
     Dates: start: 20040908, end: 20050207
  4. GEODON [Concomitant]
  5. ATENOLOL CHLORTHALIDONE ^BIOCHEMIE^ [Concomitant]
  6. POTASSIUM CHLORIDE [Concomitant]
  7. VERAPAMIL [Concomitant]

REACTIONS (7)
  - ALANINE AMINOTRANSFERASE INCREASED [None]
  - AMMONIA INCREASED [None]
  - ASPARTATE AMINOTRANSFERASE INCREASED [None]
  - CATATONIA [None]
  - DISORIENTATION [None]
  - FEELING ABNORMAL [None]
  - REACTIVE PSYCHOSIS [None]
